FAERS Safety Report 20097193 (Version 1)
Quarter: 2021Q4

REPORT INFORMATION
  Report Type: Spontaneous
  Country: CA (occurrence: CA)
  Receive Date: 20211122
  Receipt Date: 20211122
  Transmission Date: 20220303
  Serious: Yes (Other)
  Sender: FDA-Public Use
  Company Number: CA-GLAXOSMITHKLINE-CA2021AMR236118

PATIENT
  Age: 29 Year
  Sex: Male

DRUGS (7)
  1. LAMICTAL [Suspect]
     Active Substance: LAMOTRIGINE
     Indication: Schizophrenia
     Dosage: 200 MG, BID
     Route: 048
  2. CLOZAPINE [Suspect]
     Active Substance: CLOZAPINE
     Indication: Schizophrenia
     Dosage: 160 MG, QD
     Route: 048
  3. CLOZAPINE [Suspect]
     Active Substance: CLOZAPINE
     Dosage: 15 MG, QD
     Route: 048
  4. RISPERDAL [Suspect]
     Active Substance: RISPERIDONE
     Indication: Schizophrenia
     Dosage: 3 MG, QD
     Route: 048
  5. BENZOCAINE [Concomitant]
     Active Substance: BENZOCAINE
     Indication: Product used for unknown indication
     Dosage: UNK, QID, 4 EVERY 1 DAY
     Route: 061
  6. ISOPTO ATROPINE [Concomitant]
     Active Substance: ATROPINE SULFATE
     Indication: Product used for unknown indication
     Dosage: UNK, BID OPTHALMIC SOLUTION, 2 EVERY 1 DAY
     Route: 060
  7. ISOPTO TEARS [Concomitant]
     Active Substance: HYPROMELLOSE 2910 (4000 MPA.S)
     Indication: Product used for unknown indication
     Dosage: UNK, QID, 4 EVERY 1 DAYS
     Route: 047

REACTIONS (3)
  - Drug level decreased [Unknown]
  - Gilbert^s syndrome [Unknown]
  - Thrombocytopenia [Unknown]
